FAERS Safety Report 19781731 (Version 1)
Quarter: 2021Q3

REPORT INFORMATION
  Report Type: Other
  Country: US (occurrence: US)
  Receive Date: 20210902
  Receipt Date: 20210902
  Transmission Date: 20211014
  Serious: Yes (Congenital Anomaly)
  Sender: FDA-Public Use
  Company Number: US-COVIS PHARMA GMBH-2021COV23368

PATIENT

DRUGS (1)
  1. MAKENA [Suspect]
     Active Substance: HYDROXYPROGESTERONE CAPROATE
     Indication: FOETAL EXPOSURE DURING PREGNANCY
     Route: 064
     Dates: start: 20210622, end: 20210708

REACTIONS (5)
  - Ventricular septal defect [Unknown]
  - Heterotaxia [Unknown]
  - Renal aplasia [Unknown]
  - Talipes [Unknown]
  - Spine malformation [Unknown]

NARRATIVE: CASE EVENT DATE: 20210713
